FAERS Safety Report 7752933-6 (Version None)
Quarter: 2011Q3

REPORT INFORMATION
  Report Type: 
  Country: None (occurrence: None)
  Receive Date: 20110915
  Receipt Date: 20110905
  Transmission Date: 20111222
  Serious: Yes (Hospitalization, Other)
  Sender: FDA-Public Use
  Company Number: US-JNJFOC-20110807181

PATIENT
  Sex: Male
  Weight: 47.63 kg

DRUGS (15)
  1. TOPROL-XL [Concomitant]
     Route: 048
  2. SPIRONOLACTONE [Concomitant]
     Route: 048
     Dates: start: 19910101
  3. LASIX [Concomitant]
     Indication: FLUID RETENTION
     Route: 048
     Dates: start: 20110723
  4. LASIX [Concomitant]
     Route: 048
     Dates: start: 19910101
  5. SPIRONOLACTONE [Concomitant]
     Indication: BLOOD PRESSURE
     Route: 048
     Dates: start: 19910101
  6. TRAZODONE HCL [Concomitant]
     Indication: NERVOUSNESS
     Route: 065
  7. TOPROL-XL [Concomitant]
     Indication: BLOOD PRESSURE
     Route: 048
     Dates: start: 19910101
  8. ZYTIGA [Suspect]
     Indication: PROSTATE CANCER
     Route: 048
     Dates: start: 20110701
  9. LASIX [Concomitant]
     Indication: OEDEMA
     Route: 048
     Dates: start: 20110723
  10. SPIRONOLACTONE [Concomitant]
     Indication: DIURETIC THERAPY
     Route: 048
     Dates: start: 20110730
  11. SPIRONOLACTONE [Concomitant]
     Route: 048
     Dates: start: 20110730
  12. TRAZODONE HCL [Concomitant]
     Indication: FEELING JITTERY
     Route: 065
  13. ZYTIGA [Suspect]
     Route: 048
     Dates: start: 20110701, end: 20110701
  14. PREDNISONE [Suspect]
     Indication: PROSTATE CANCER
     Route: 048
     Dates: start: 20110701
  15. LASIX [Concomitant]
     Route: 048
     Dates: start: 19910101

REACTIONS (12)
  - PRURITUS [None]
  - MUSCLE TWITCHING [None]
  - RESTLESS LEGS SYNDROME [None]
  - FEELING JITTERY [None]
  - PROSTATIC SPECIFIC ANTIGEN INCREASED [None]
  - FATIGUE [None]
  - SOMNOLENCE [None]
  - NERVOUSNESS [None]
  - WEIGHT INCREASED [None]
  - WEIGHT DECREASED [None]
  - FLUID RETENTION [None]
  - DEPRESSED MOOD [None]
